FAERS Safety Report 4567781-8 (Version None)
Quarter: 2005Q1

REPORT INFORMATION
  Report Type: 
  Country: None (occurrence: None)
  Receive Date: 20050125
  Receipt Date: 20050125
  Transmission Date: 20050727
  Serious: Yes (Other)
  Sender: FDA-Public Use
  Company Number: None

PATIENT
  Age: 52 Year
  Sex: Male
  Weight: 118.8424 kg

DRUGS (5)
  1. OXYCONTIN [Suspect]
     Indication: NERVE COMPRESSION
     Dosage: 240 MGS IN AM + 240 MGS IN PM
     Dates: start: 19940101
  2. OXYCONTIN [Suspect]
     Indication: SPINAL LAMINECTOMY
     Dosage: 240 MGS IN AM + 240 MGS IN PM
     Dates: start: 19940101
  3. MULTIVITAMIN [Concomitant]
  4. FIBER CAPLETS [Concomitant]
  5. STRAIGHT 14 GR CATHERERS [Concomitant]

REACTIONS (4)
  - ANURIA [None]
  - CONSTIPATION [None]
  - MICTURITION DISORDER [None]
  - PHARMACEUTICAL PRODUCT COMPLAINT [None]
